FAERS Safety Report 12880877 (Version 1)
Quarter: 2016Q4

REPORT INFORMATION
  Report Type: Spontaneous
  Country: US (occurrence: US)
  Receive Date: 20161024
  Receipt Date: 20161024
  Transmission Date: 20170207
  Serious: Yes (Other)
  Sender: FDA-Public Use
  Company Number: None

PATIENT
  Age: 64 Year
  Sex: Male
  Weight: 123.75 kg

DRUGS (6)
  1. VITA-GUMMIES [Concomitant]
  2. SINGULAIR [Concomitant]
     Active Substance: MONTELUKAST SODIUM
  3. WALFEX [Concomitant]
  4. FINASTERIDE 5MG TABLETS [Suspect]
     Active Substance: FINASTERIDE
     Indication: PROSTATOMEGALY
     Route: 048
     Dates: start: 20161010, end: 20161015
  5. AMINO ACID [Concomitant]
     Active Substance: AMINO ACIDS
  6. TAMULOSIN [Concomitant]
     Active Substance: TAMSULOSIN

REACTIONS (9)
  - Dizziness [None]
  - Pain in extremity [None]
  - Pyrexia [None]
  - Rash [None]
  - Pain [None]
  - Urticaria [None]
  - Peripheral swelling [None]
  - Cold sweat [None]
  - Rash pustular [None]

NARRATIVE: CASE EVENT DATE: 20161014
